FAERS Safety Report 10213942 (Version 1)
Quarter: 2014Q2

REPORT INFORMATION
  Report Type: Spontaneous
  Country: GB (occurrence: None)
  Receive Date: 20140529
  Receipt Date: 20140529
  Transmission Date: 20141212
  Serious: Yes (Hospitalization, Other)
  Sender: FDA-Public Use
  Company Number: KAD201405-000544

PATIENT
  Age: 53 Year
  Sex: Female

DRUGS (3)
  1. RIBAVIRIN [Suspect]
     Indication: HEPATITIS C
  2. PEGINTERFERON-ALFA [Suspect]
     Indication: HEPATITIS C
     Route: 058
  3. TELAPREVIR (TELAPREVIR) [Suspect]
     Indication: HEPATITIS C

REACTIONS (9)
  - Thrombotic microangiopathy [None]
  - Rash maculo-papular [None]
  - Nausea [None]
  - Fatigue [None]
  - Vomiting [None]
  - Fall [None]
  - Haemoglobin decreased [None]
  - Blood lactate dehydrogenase increased [None]
  - Renal failure acute [None]
